FAERS Safety Report 7053863-8 (Version None)
Quarter: 2010Q4

REPORT INFORMATION
  Report Type: 
  Country: None (occurrence: None)
  Receive Date: 20101020
  Receipt Date: 20101008
  Transmission Date: 20110411
  Serious: Yes (Other)
  Sender: FDA-Public Use
  Company Number: US-WATSON-2010-13498

PATIENT
  Sex: Male
  Weight: 79.4 kg

DRUGS (2)
  1. OXYCODONE HYDROCHLORIDE/ACETAMINOPHEN 10/325 MG (WATSON LABORATORIES) [Suspect]
     Indication: BACK PAIN
     Dosage: 1 TAB PRN
     Route: 048
     Dates: start: 20070101
  2. ZOLPIDEM [Suspect]
     Indication: SLEEP DISORDER
     Dosage: 1/2 TAB QHS PRN
     Route: 048
     Dates: start: 20080101

REACTIONS (6)
  - AMNESIA [None]
  - FEELING ABNORMAL [None]
  - LOSS OF CONSCIOUSNESS [None]
  - LOSS OF CONTROL OF LEGS [None]
  - TRANSIENT ISCHAEMIC ATTACK [None]
  - WITHDRAWAL SYNDROME [None]
